FAERS Safety Report 8985930 (Version 1)
Quarter: 2012Q4

REPORT INFORMATION
  Report Type: 
  Country: DE (occurrence: DE)
  Receive Date: 20121226
  Receipt Date: 20121226
  Transmission Date: 20130627
  Serious: Yes (Hospitalization)
  Sender: FDA-Public Use
  Company Number: DE-ELI_LILLY_AND_COMPANY-DE201211000516

PATIENT
  Sex: Female

DRUGS (4)
  1. BYETTA [Suspect]
     Dosage: 10 ug, bid
     Route: 058
     Dates: start: 201207
  2. IBUFLAM                            /00109201/ [Concomitant]
  3. GABAPENTIN [Concomitant]
     Indication: HYPOAESTHESIA
  4. SIMVABETA [Concomitant]

REACTIONS (2)
  - Blood glucose increased [Unknown]
  - Renal function test abnormal [Not Recovered/Not Resolved]
